FAERS Safety Report 14497234 (Version 1)
Quarter: 2018Q1

REPORT INFORMATION
  Report Type: Spontaneous
  Country: US (occurrence: US)
  Receive Date: 20180206
  Receipt Date: 20180206
  Transmission Date: 20180509
  Serious: Yes (Hospitalization)
  Sender: FDA-Public Use
  Company Number: None

PATIENT
  Age: 72 Year
  Sex: Female

DRUGS (4)
  1. HUMIRA [Suspect]
     Active Substance: ADALIMUMAB
     Indication: RHEUMATOID ARTHRITIS
     Route: 058
     Dates: start: 20130920
  2. CQ10 [Concomitant]
     Active Substance: UBIDECARENONE
  3. ESTRACE [Concomitant]
     Active Substance: ESTRADIOL
  4. METHOTREXATE. [Concomitant]
     Active Substance: METHOTREXATE

REACTIONS (3)
  - Mammoplasty [None]
  - Neck surgery [None]
  - Therapy cessation [None]

NARRATIVE: CASE EVENT DATE: 20180122
